FAERS Safety Report 6616613-2 (Version None)
Quarter: 2010Q1

REPORT INFORMATION
  Report Type: 
  Country: None (occurrence: None)
  Receive Date: 20100305
  Receipt Date: 20100225
  Transmission Date: 20100710
  Serious: Yes (Life-Threatening, Hospitalization, Other)
  Sender: FDA-Public Use
  Company Number: FR-PFIZER INC-2009235122

PATIENT
  Age: 68 Year
  Sex: Male

DRUGS (15)
  1. TAHOR [Suspect]
     Dosage: 80 MG, 1X/DAY
     Route: 048
     Dates: start: 19850904, end: 20080211
  2. MOPRAL [Interacting]
     Indication: PROPHYLAXIS
     Dosage: 20 MG, DAILY
     Dates: start: 19850904, end: 20080211
  3. PLAVIX [Interacting]
     Dosage: 2 DF, 1X/DAY
     Dates: start: 20050101
  4. PLAVIX [Interacting]
     Dosage: 1 DF, 1X/DAY
  5. KARDEGIC [Concomitant]
     Dosage: UNK
  6. LOVENOX [Concomitant]
     Dosage: UNK
     Dates: start: 20080125
  7. KREDEX [Concomitant]
     Dosage: 2 DF, 1X/DAY
     Dates: start: 20080125
  8. TRIATEC [Concomitant]
     Dosage: 1 DF, 1X/DAY
     Dates: start: 20050201
  9. OMACOR [Concomitant]
     Dosage: 1 DF, 1X/DAY
     Dates: start: 20080125
  10. BISOPROLOL FUMARATE [Concomitant]
     Indication: HYPERTENSION
     Dosage: 5 MG, 1X/DAY
     Route: 048
     Dates: start: 20050904
  11. BISOPROLOL FUMARATE [Concomitant]
     Indication: MYOCARDIAL INFARCTION
  12. BISOPROLOL FUMARATE [Concomitant]
     Indication: STENT PLACEMENT
  13. EZETROL [Concomitant]
     Indication: HYPERCHOLESTEROLAEMIA
     Dosage: 10 MG, 1X/DAY
     Route: 048
     Dates: start: 20060620
  14. BIPRETERAX [Concomitant]
     Indication: HYPERTENSION
     Dosage: 4 MG/ 1.25 MG, 1X/DAY
     Dates: start: 20060620
  15. BIPRETERAX [Concomitant]
     Indication: CARDIAC FAILURE

REACTIONS (3)
  - DEVICE OCCLUSION [None]
  - DRUG INTERACTION [None]
  - MYOCARDIAL INFARCTION [None]
